FAERS Safety Report 14157584 (Version 1)
Quarter: 2017Q4

REPORT INFORMATION
  Report Type: Report from Study
  Country: DE (occurrence: DE)
  Receive Date: 20171103
  Receipt Date: 20171103
  Transmission Date: 20180321
  Serious: Yes (Death, Hospitalization)
  Sender: FDA-Public Use
  Company Number: PHHO2015DE013798

PATIENT
  Age: 77 Year
  Sex: Male
  Weight: 90 kg

DRUGS (10)
  1. ASA [Concomitant]
     Active Substance: ASPIRIN
     Indication: CORONARY ARTERY DISEASE
     Dosage: 100 MG, QD
     Route: 065
     Dates: start: 1994, end: 20150629
  2. LISINOPRIL. [Concomitant]
     Active Substance: LISINOPRIL
     Indication: HYPERTENSION
     Dosage: 10 MG, QD
     Route: 065
     Dates: start: 2006, end: 20150629
  3. INSULIN GLARGINE [Concomitant]
     Active Substance: INSULIN GLARGINE
     Indication: TYPE 2 DIABETES MELLITUS
     Dosage: PER ^SCHEME^
     Route: 065
     Dates: start: 2003, end: 20150629
  4. ACZ885 [Suspect]
     Active Substance: CANAKINUMAB
     Indication: CARDIOVASCULAR EVENT PROPHYLAXIS
     Dosage: 50 MG, QUARTERLY
     Route: 058
     Dates: start: 20120827, end: 20150602
  5. TORASEMID [Concomitant]
     Active Substance: TORSEMIDE
     Indication: CARDIOMYOPATHY
     Dosage: 10 MG, BID
     Route: 065
     Dates: start: 2009, end: 20150629
  6. EPLERENON [Concomitant]
     Active Substance: EPLERENONE
     Indication: CARDIOMYOPATHY
     Dosage: 25 MG, QD
     Route: 065
     Dates: start: 2012, end: 20150629
  7. SIMVASTATIN. [Concomitant]
     Active Substance: SIMVASTATIN
     Indication: HYPERCHOLESTEROLAEMIA
     Dosage: 40 MG, QD
     Route: 065
     Dates: start: 2003, end: 20150629
  8. INSULIN [Concomitant]
     Active Substance: INSULIN NOS
     Indication: TYPE 2 DIABETES MELLITUS
     Dosage: PER ^SCHEME^
     Route: 065
     Dates: start: 2006
  9. CARVEDILOL. [Concomitant]
     Active Substance: CARVEDILOL
     Indication: HYPERTENSION
     Dosage: 6.25 MG, BID
     Route: 065
     Dates: start: 2006, end: 20150629
  10. LEVOTHYROXIN [Concomitant]
     Active Substance: LEVOTHYROXINE
     Indication: HYPOTHYROIDISM
     Dosage: 75 UG, 1-0-0
     Route: 065
     Dates: start: 2013, end: 20150629

REACTIONS (4)
  - Cardiac failure acute [Not Recovered/Not Resolved]
  - Acute kidney injury [Not Recovered/Not Resolved]
  - Thrombocytopenia [Not Recovered/Not Resolved]
  - Haemorrhagic pneumonia [Fatal]

NARRATIVE: CASE EVENT DATE: 20140915
